FAERS Safety Report 23587564 (Version 2)
Quarter: 2024Q2

REPORT INFORMATION
  Report Type: Spontaneous
  Country: US (occurrence: US)
  Receive Date: 20240301
  Receipt Date: 20240618
  Transmission Date: 20240716
  Serious: No
  Sender: FDA-Public Use
  Company Number: US-SA-2024SA044350

PATIENT
  Age: 23 Year
  Sex: Female

DRUGS (1)
  1. DUPIXENT [Suspect]
     Active Substance: DUPILUMAB
     Indication: Asthma
     Dosage: 300 MG, QOW
     Route: 058

REACTIONS (5)
  - Alopecia [Recovering/Resolving]
  - Hair growth abnormal [Recovering/Resolving]
  - Dyspnoea [Unknown]
  - Loss of personal independence in daily activities [Unknown]
  - Injection site erythema [Recovered/Resolved]
